FAERS Safety Report 20959348 (Version 1)
Quarter: 2022Q2

REPORT INFORMATION
  Report Type: Spontaneous
  Country: ES (occurrence: ES)
  Receive Date: 20220614
  Receipt Date: 20220614
  Transmission Date: 20220721
  Serious: Yes (Hospitalization)
  Sender: FDA-Public Use
  Company Number: None

PATIENT
  Age: 74 Year
  Sex: Male

DRUGS (8)
  1. SPIRONOLACTONE [Suspect]
     Active Substance: SPIRONOLACTONE
     Indication: Ascites
     Dosage: 200 MG/24H
     Route: 048
     Dates: start: 20200615
  2. FUROSEMIDE [Suspect]
     Active Substance: FUROSEMIDE
     Indication: Ascites
     Dosage: 40 MG/24H
     Route: 048
     Dates: start: 20200616
  3. OPONAF [Concomitant]
     Indication: Hepatic cirrhosis
     Dosage: 10 G, 3X/DAY BREAKFAST, LUNCH, DINNER
     Route: 048
     Dates: start: 20210111
  4. DUPHALAC [Concomitant]
     Active Substance: LACTULOSE
     Indication: Encephalopathy
     Dosage: 20 G, 3X/DAY BREAKFAST, LUNCH, DINNER
     Route: 048
     Dates: start: 20151112
  5. OMEPRAZOL CINFA [Concomitant]
     Indication: Gastritis
     Dosage: 20 MG, 2X/DAY BEFORE BREAKFAST AND DINNER
     Route: 048
     Dates: start: 20141119
  6. INNOHEP [Concomitant]
     Active Substance: TINZAPARIN SODIUM
     Indication: Portal vein thrombosis
     Dosage: 12000 IU, 1X/DAY
     Route: 058
     Dates: start: 20210612
  7. PROPRANOLOL HYDROCHLORIDE [Concomitant]
     Active Substance: PROPRANOLOL HYDROCHLORIDE
     Indication: Varices oesophageal
     Dosage: 10 MG, 1X/DAY BREAKFAST
     Route: 048
     Dates: start: 20211119
  8. RIFAXIMIN [Concomitant]
     Active Substance: RIFAXIMIN
     Indication: Encephalopathy
     Dosage: 200 MG, 3X/DAY BREAKFAST LUNCH DINNER
     Route: 048
     Dates: start: 20200826

REACTIONS (1)
  - Hepatic encephalopathy [Recovered/Resolved]

NARRATIVE: CASE EVENT DATE: 20220221
